FAERS Safety Report 12539315 (Version 1)
Quarter: 2016Q3

REPORT INFORMATION
  Report Type: Spontaneous
  Country: US (occurrence: US)
  Receive Date: 20160708
  Receipt Date: 20160708
  Transmission Date: 20161109
  Serious: No
  Sender: FDA-Public Use
  Company Number: US-BAYER-2016-126635

PATIENT
  Age: 82 Year
  Sex: Male
  Weight: 81.63 kg

DRUGS (1)
  1. MIRALAX [Suspect]
     Active Substance: POLYETHYLENE GLYCOL 3350
     Indication: ANAL INCONTINENCE

REACTIONS (4)
  - Anal incontinence [None]
  - Frequent bowel movements [None]
  - Off label use [None]
  - Product use issue [None]
